FAERS Safety Report 23126641 (Version 2)
Quarter: 2023Q4

REPORT INFORMATION
  Report Type: Spontaneous
  Country: BE (occurrence: BE)
  Receive Date: 20231030
  Receipt Date: 20231220
  Transmission Date: 20240110
  Serious: Yes (Congenital Anomaly)
  Sender: FDA-Public Use
  Company Number: None

PATIENT
  Age: 30 Year
  Sex: Female
  Weight: 54 kg

DRUGS (9)
  1. ELEXACAFTOR\IVACAFTOR\TEZACAFTOR [Suspect]
     Active Substance: ELEXACAFTOR\IVACAFTOR\TEZACAFTOR
     Indication: Cystic fibrosis
     Dosage: 2 TIMES DAILY (100 MG/50 MG/75 MG)
     Route: 048
     Dates: start: 20221012
  2. KALYDECO [Suspect]
     Active Substance: IVACAFTOR
     Indication: Cystic fibrosis
     Dosage: UNK
     Route: 048
     Dates: start: 20221012
  3. COLISTIN [Concomitant]
     Active Substance: COLISTIN
  4. PULMOZYME [Concomitant]
     Active Substance: DORNASE ALFA
  5. ENOXAPARIN SODIUM [Concomitant]
     Active Substance: ENOXAPARIN SODIUM
  6. FOLIC ACID [Concomitant]
     Active Substance: FOLIC ACID
  7. CREON [Concomitant]
     Active Substance: PANCRELIPASE AMYLASE\PANCRELIPASE LIPASE\PANCRELIPASE PROTEASE
  8. OMEPRAZOLE [Concomitant]
     Active Substance: OMEPRAZOLE
  9. LEVOCETIRIZINE DIHYDROCHLORIDE [Concomitant]
     Active Substance: LEVOCETIRIZINE DIHYDROCHLORIDE

REACTIONS (5)
  - Limb reduction defect [Recovered/Resolved]
  - Foetal malformation [Recovered/Resolved]
  - Proximal focal femoral deficiency [Recovered/Resolved]
  - Congenital musculoskeletal disorder of limbs [Recovered/Resolved]
  - Exposure during pregnancy [Unknown]

NARRATIVE: CASE EVENT DATE: 20230831
